FAERS Safety Report 8917641 (Version 1)
Quarter: 2012Q4

REPORT INFORMATION
  Report Type: 
  Country: US (occurrence: US)
  Receive Date: 20121120
  Receipt Date: 20121120
  Transmission Date: 20130627
  Serious: No
  Sender: FDA-Public Use
  Company Number: US-VERTEX PHARMACEUTICAL INC.-2012-024714

PATIENT
  Age: 51 None
  Sex: Male
  Weight: 109 kg

DRUGS (6)
  1. INCIVEK [Suspect]
     Indication: HEPATITIS C
     Dosage: 750 mg, tid
     Route: 048
     Dates: start: 20120827
  2. PEGASYS [Suspect]
     Indication: HEPATITIS C
     Dosage: 180 ?g, qw
     Route: 058
     Dates: start: 20120827
  3. RIBAVIRIN [Suspect]
     Indication: HEPATITIS C
     Dosage: 300 mg, qd
     Route: 048
     Dates: start: 201210
  4. TRICOR                             /00090101/ [Concomitant]
     Indication: BLOOD CHOLESTEROL INCREASED
     Dosage: UNK, qd
     Route: 048
  5. TEMAZEPAM [Concomitant]
     Indication: ANXIETY
     Dosage: 2 mg, prn
     Route: 048
  6. BENADRYL                           /00000402/ [Concomitant]
     Indication: SLEEP DISORDER
     Dosage: 25-50 mg,PRN HS
     Route: 048

REACTIONS (4)
  - Renal function test abnormal [Not Recovered/Not Resolved]
  - Dehydration [Not Recovered/Not Resolved]
  - Pain [Recovered/Resolved]
  - Diarrhoea [Recovered/Resolved]
